FAERS Safety Report 8571640-3 (Version None)
Quarter: 2012Q3

REPORT INFORMATION
  Report Type: 
  Country: None (occurrence: None)
  Receive Date: 20120806
  Receipt Date: 20120725
  Transmission Date: 20120928
  Serious: Yes (Hospitalization)
  Sender: FDA-Public Use
  Company Number: US-BAYER-2011-003483

PATIENT
  Age: 33 Year
  Sex: Female
  Weight: 116.55 kg

DRUGS (11)
  1. EFFEXOR XR [Concomitant]
  2. DESOGESTREL AND ETHINYL ESTRADIOL [Concomitant]
  3. MAXALT [Concomitant]
  4. GLUCOCORTICOIDS [Concomitant]
  5. HYDROCODONE BITARTRATE AND ACETAMINOPHEN [Concomitant]
  6. CEFTIN [Concomitant]
  7. DROSPIRENONE AND ETHINYL ESTRADIOL [Suspect]
     Indication: HYPERTRICHOSIS
  8. LORTAB [Concomitant]
  9. DROSPIRENONE AND ETHINYL ESTRADIOL [Suspect]
     Indication: CONTRACEPTION
     Dosage: UNK
     Route: 048
     Dates: start: 20090301, end: 20091216
  10. IMITREX [Concomitant]
  11. TAMIFLU [Concomitant]

REACTIONS (9)
  - DEPRESSION [None]
  - PULMONARY INFARCTION [None]
  - EMOTIONAL DISTRESS [None]
  - CHEST PAIN [None]
  - CHEST DISCOMFORT [None]
  - ATELECTASIS [None]
  - PULMONARY EMBOLISM [None]
  - HAEMOPTYSIS [None]
  - ANXIETY [None]
